FAERS Safety Report 5078310-7 (Version None)
Quarter: 2006Q3

REPORT INFORMATION
  Report Type: 
  Country: None (occurrence: None)
  Receive Date: 20060720
  Receipt Date: 20060612
  Transmission Date: 20061208
  Serious: Yes (Other)
  Sender: FDA-Public Use
  Company Number: HQWYE227214JUN06

PATIENT
  Age: 72 Year
  Sex: Female
  Weight: 74.91 kg

DRUGS (3)
  1. ADVIL PM [Suspect]
     Indication: SLEEP DISORDER
     Dosage: 1 CAPLET DAILY, ORAL
     Route: 048
     Dates: start: 20060608
  2. PREMPRO [Concomitant]
  3. ZOCOR [Concomitant]

REACTIONS (1)
  - DRUG INEFFECTIVE [None]
